FAERS Safety Report 21158075 (Version 1)
Quarter: 2022Q3

REPORT INFORMATION
  Report Type: Spontaneous
  Country: TR (occurrence: TR)
  Receive Date: 20220801
  Receipt Date: 20220801
  Transmission Date: 20221026
  Serious: Yes (Hospitalization, Other)
  Sender: FDA-Public Use
  Company Number: TR-BAXTER-2022BAX015977

PATIENT
  Age: 29 Year
  Sex: Male

DRUGS (10)
  1. SEVOFLURANE [Suspect]
     Active Substance: SEVOFLURANE
     Indication: Induction and maintenance of anaesthesia
     Dosage: 3%
  2. MIDAZOLAM [Concomitant]
     Active Substance: MIDAZOLAM
     Indication: Induction of anaesthesia
     Dosage: 4 MG
     Route: 042
  3. MIDAZOLAM [Concomitant]
     Active Substance: MIDAZOLAM
     Indication: General anaesthesia
     Dosage: 1 MG
     Route: 065
  4. FENTANYL [Concomitant]
     Active Substance: FENTANYL
     Indication: General anaesthesia
     Route: 065
  5. LIDOCAINE [Concomitant]
     Active Substance: LIDOCAINE
     Indication: Induction of anaesthesia
     Dosage: 1 MG/KG
     Route: 065
  6. THIOPENTAL [Concomitant]
     Active Substance: THIOPENTAL
     Indication: Induction of anaesthesia
     Dosage: 7 MG/KG
     Route: 065
  7. ROCURONIUM [Concomitant]
     Active Substance: ROCURONIUM BROMIDE
     Indication: Induction of anaesthesia
     Dosage: 0.6 MG/KG
     Route: 065
  8. REMIFENTANIL [Concomitant]
     Active Substance: REMIFENTANIL
     Indication: Induction of anaesthesia
     Dosage: 0.5 MG/KG
     Route: 065
  9. REMIFENTANIL [Concomitant]
     Active Substance: REMIFENTANIL
     Dosage: 0.125 MG/KG/MIN
     Route: 065
  10. OXYGEN [Concomitant]
     Active Substance: OXYGEN
     Indication: Maintenance of anaesthesia
     Dosage: 50%

REACTIONS (4)
  - Pulmonary haemorrhage [Recovered/Resolved]
  - Haemorrhage [Recovered/Resolved]
  - Hypoxia [Recovered/Resolved]
  - Lung infiltration [Recovered/Resolved]
